FAERS Safety Report 18080320 (Version 1)
Quarter: 2020Q3

REPORT INFORMATION
  Report Type: Spontaneous
  Country: US (occurrence: US)
  Receive Date: 20200728
  Receipt Date: 20200728
  Transmission Date: 20201103
  Serious: Yes (Other)
  Sender: FDA-Public Use
  Company Number: US-MYLANLABS-2020M1067978

PATIENT
  Age: 12 Year
  Sex: Female

DRUGS (5)
  1. DOXORUBICIN [Suspect]
     Active Substance: DOXORUBICIN
     Indication: NUT MIDLINE CARCINOMA
     Dosage: TOTAL OF 14 CYCLES
     Route: 065
  2. VINCRISTINE [Suspect]
     Active Substance: VINCRISTINE
     Indication: NUT MIDLINE CARCINOMA
     Dosage: TOTAL OF 14 CYCLES
     Route: 065
  3. ETOPOSIDE. [Suspect]
     Active Substance: ETOPOSIDE
     Indication: NUT MIDLINE CARCINOMA
     Dosage: ALTERNATING WITH VINCRISTINE, CYCLOPHOSPHAMIDE, AND DOXORUBICIN
     Route: 065
  4. IFOSFAMIDE. [Suspect]
     Active Substance: IFOSFAMIDE
     Indication: NUT MIDLINE CARCINOMA
     Dosage: ALTERNATING WITH VINCRISTINE, CYCLOPHOSPHAMIDE, AND DOXORUBICIN
     Route: 065
  5. CYCLOPHOSPHAMIDE. [Suspect]
     Active Substance: CYCLOPHOSPHAMIDE
     Indication: NUT MIDLINE CARCINOMA
     Dosage: TOTAL OF 14 CYCLES
     Route: 065

REACTIONS (5)
  - Hypothyroidism [Unknown]
  - Epistaxis [Unknown]
  - Premature menopause [Unknown]
  - Osteoporosis [Unknown]
  - Chronic sinusitis [Unknown]
